FAERS Safety Report 8265635-7 (Version None)
Quarter: 2012Q2

REPORT INFORMATION
  Report Type: 
  Country: None (occurrence: None)
  Receive Date: 20120406
  Receipt Date: 20120402
  Transmission Date: 20120825
  Serious: Yes (Death, Other)
  Sender: FDA-Public Use
  Company Number: CHPA2012US006090

PATIENT
  Sex: Female

DRUGS (1)
  1. EXCEDRIN (MIGRAINE) [Suspect]
     Indication: HEADACHE
     Dosage: 4 DF AT A TIME, UNK
     Route: 048

REACTIONS (3)
  - PARKINSON'S DISEASE [None]
  - INCORRECT DOSE ADMINISTERED [None]
  - COLON CANCER [None]
